FAERS Safety Report 15629585 (Version 1)
Quarter: 2018Q4

REPORT INFORMATION
  Report Type: Report from Study
  Country: ES (occurrence: ES)
  Receive Date: 20181117
  Receipt Date: 20181117
  Transmission Date: 20190205
  Serious: Yes (Hospitalization, Other)
  Sender: FDA-Public Use
  Company Number: ES-TEVA-2018-ES-975908

PATIENT
  Age: 87 Year
  Sex: Female

DRUGS (10)
  1. MASDIL RETARD 120 MG COMPRIMIDOS DE LIBERACION PROLONGADA [Concomitant]
     Dosage: 1/24H
     Route: 048
  2. DOLOCATIL [Concomitant]
     Active Substance: ACETAMINOPHEN
     Dosage: SP
     Route: 048
  3. FENTANILO 25 PARCHE [Suspect]
     Active Substance: FENTANYL
     Dosage: 0.5/72 FOR 2 WEEKS. IN CURRENT HISTORY OF HIGH REPORT:  ^YOUR MAP DECREASES TO A ROOM TWO DAYS AGO,
     Route: 062
     Dates: start: 201712, end: 20180113
  4. DEANXIT [Interacting]
     Active Substance: FLUPENTIXOL DIHYDROCHLORIDE\MELITRACEN HYDROCHLORIDE
     Indication: MIXED ANXIETY AND DEPRESSIVE DISORDER
     Dosage: 1 DOSAGE FORMS DAILY; 0-1-0
     Route: 048
     Dates: start: 2007, end: 20180119
  5. SEROXAT 20 [Interacting]
     Active Substance: PAROXETINE HYDROCHLORIDE
     Indication: MIXED ANXIETY AND DEPRESSIVE DISORDER
     Dosage: 10 MILLIGRAM DAILY; 0.5-0-0
     Route: 048
     Dates: start: 2002
  6. DUPHALAC [Concomitant]
     Active Substance: LACTULOSE
     Dosage: 1-0-0
     Route: 048
  7. ENALAPRIL 5 [Concomitant]
     Active Substance: ENALAPRIL
     Dosage: 1/24H
     Route: 048
  8. ORFIDAL [Interacting]
     Active Substance: LORAZEPAM
     Indication: MIXED ANXIETY AND DEPRESSIVE DISORDER
     Dosage: 1 MILLIGRAM DAILY; 0-0-1
     Route: 048
     Dates: start: 2003
  9. ZOCOR  FORTE 40 MG [Concomitant]
     Dosage: 0-0-1
     Route: 048
  10. ACECLOFENACO (2552A) [Concomitant]
     Dosage: SP
     Route: 048

REACTIONS (3)
  - Stupor [Recovered/Resolved]
  - Drug interaction [Unknown]
  - Confusional state [Recovered/Resolved]

NARRATIVE: CASE EVENT DATE: 201712
